FAERS Safety Report 10469414 (Version 1)
Quarter: 2014Q3

REPORT INFORMATION
  Report Type: Spontaneous
  Country: US (occurrence: None)
  Receive Date: 20140922
  Receipt Date: 20140922
  Transmission Date: 20150326
  Serious: Yes (Disabling)
  Sender: FDA-Public Use
  Company Number: None

PATIENT
  Age: 62 Year
  Sex: Female
  Weight: 64.41 kg

DRUGS (1)
  1. FLUOXETINE [Suspect]
     Active Substance: FLUOXETINE\FLUOXETINE HYDROCHLORIDE
     Indication: DEPRESSION
     Dosage: 60 MG/3 CAPSULES?ONCE DAILY?TAKEN BY MOUTH
     Route: 048
     Dates: start: 20130930, end: 20140531

REACTIONS (6)
  - Weight increased [None]
  - Increased appetite [None]
  - Product substitution issue [None]
  - Blood cholesterol increased [None]
  - Drug effect decreased [None]
  - Blood pressure increased [None]

NARRATIVE: CASE EVENT DATE: 20140918
